FAERS Safety Report 17956968 (Version 1)
Quarter: 2020Q2

REPORT INFORMATION
  Report Type: Spontaneous
  Country: US (occurrence: US)
  Receive Date: 20200629
  Receipt Date: 20200629
  Transmission Date: 20200714
  Serious: Yes (Death)
  Sender: FDA-Public Use
  Company Number: None

PATIENT
  Age: 60 Year
  Sex: Male
  Weight: 66.9 kg

DRUGS (22)
  1. ATORVASTATIN 10MG [Concomitant]
     Active Substance: ATORVASTATIN
     Dates: start: 20200627, end: 20200628
  2. CEFTRIAXONE 1G [Concomitant]
     Dates: start: 20200625, end: 20200627
  3. ALBUTEROL INH [Concomitant]
     Active Substance: ALBUTEROL
     Dates: start: 20200625, end: 20200628
  4. INSULIN GLARGINE [Concomitant]
     Active Substance: INSULIN GLARGINE
     Dates: start: 20200626, end: 20200628
  5. VANCOMYCIN [Concomitant]
     Active Substance: VANCOMYCIN
     Dates: start: 20200627, end: 20200628
  6. ACETAMINOPHEN SOL 325MG/10ML [Concomitant]
     Dates: start: 20200627, end: 20200627
  7. EPINEPHRINE DRIP [Concomitant]
     Dates: start: 20200628, end: 20200628
  8. VASOPRESSIN. [Concomitant]
     Active Substance: VASOPRESSIN
     Dates: start: 20200627, end: 20200628
  9. REMDESIVIR. [Suspect]
     Active Substance: REMDESIVIR
     Indication: COVID-19
     Route: 041
     Dates: start: 20200626, end: 20200628
  10. ACETYLCYSTEINE SOL 20% [Concomitant]
     Dates: start: 20200627, end: 20200628
  11. DEXMEDETOMIDINE. [Concomitant]
     Active Substance: DEXMEDETOMIDINE
     Dates: start: 20200626, end: 20200628
  12. DOXYCYCLINE. [Concomitant]
     Active Substance: DOXYCYCLINE
     Dates: start: 20200625, end: 20200627
  13. PROPOFOL. [Concomitant]
     Active Substance: PROPOFOL
     Dates: start: 20200626, end: 20200628
  14. FAMOTIDINE 20MG IV [Concomitant]
     Dates: start: 20200625, end: 20200628
  15. AMIODARONE IV [Concomitant]
     Dates: start: 20200628, end: 20200628
  16. CALCIUM GLUCONATE IV [Concomitant]
     Dates: start: 20200628, end: 20200628
  17. DEXAMETHASONE 6MG IV [Concomitant]
     Dates: start: 20200625, end: 20200628
  18. ENOXAPARIN [Concomitant]
     Active Substance: ENOXAPARIN
     Dates: start: 20200625, end: 20200628
  19. NOREPINEPHRINE DRIP [Concomitant]
     Dates: start: 20200627, end: 20200628
  20. OFIRMEV IV [Concomitant]
     Dates: start: 20200627, end: 20200628
  21. BENZONATATE 100MG [Concomitant]
     Active Substance: BENZONATATE
     Dates: start: 20200626, end: 20200628
  22. ZOSYN [Concomitant]
     Active Substance: PIPERACILLIN SODIUM\TAZOBACTAM SODIUM
     Dates: start: 20200627, end: 20200628

REACTIONS (1)
  - Wrong technique in product usage process [None]

NARRATIVE: CASE EVENT DATE: 20200627
